FAERS Safety Report 6847155-7 (Version None)
Quarter: 2010Q3

REPORT INFORMATION
  Report Type: 
  Country: None (occurrence: None)
  Receive Date: 20100716
  Receipt Date: 20100706
  Transmission Date: 20110219
  Serious: No
  Sender: FDA-Public Use
  Company Number: US-BIOGENIDEC-2010BI022566

PATIENT
  Age: 51 Year
  Sex: Female

DRUGS (3)
  1. AVONEX [Suspect]
     Indication: MULTIPLE SCLEROSIS
     Route: 030
     Dates: start: 20100608
  2. AVONEX [Suspect]
     Route: 030
     Dates: start: 20100525, end: 20100531
  3. AVONEX [Suspect]
     Route: 030
     Dates: start: 20100601, end: 20100607

REACTIONS (3)
  - CHEST DISCOMFORT [None]
  - CONTUSION [None]
  - HYPERHIDROSIS [None]
